FAERS Safety Report 6862037-2 (Version None)
Quarter: 2010Q3

REPORT INFORMATION
  Report Type: 
  Country: None (occurrence: None)
  Receive Date: 20100708
  Receipt Date: 20100625
  Transmission Date: 20110219
  Serious: Yes (Disabling)
  Sender: FDA-Public Use
  Company Number: P0537

PATIENT
  Age: 59 Year
  Sex: Male

DRUGS (5)
  1. PROVENGE [Suspect]
     Indication: PROSTATE CANCER
     Dosage: INTRAVENOUS
     Route: 042
     Dates: start: 20091105, end: 20091105
  2. ALTACE [Concomitant]
  3. ZOMIG [Concomitant]
  4. WELLBUTRIN [Concomitant]
  5. ACYCLOVIR (ACICLOVIR SODIUM) [Concomitant]

REACTIONS (2)
  - BLOOD PRESSURE ABNORMAL [None]
  - RETINAL VEIN OCCLUSION [None]
